FAERS Safety Report 21063997 (Version 2)
Quarter: 2022Q3

REPORT INFORMATION
  Report Type: Report from Study
  Country: CA (occurrence: CA)
  Receive Date: 20220711
  Receipt Date: 20220715
  Transmission Date: 20221026
  Serious: Yes (Other)
  Sender: FDA-Public Use
  Company Number: CA-ABBVIE-22K-028-4461026-00

PATIENT
  Sex: Male

DRUGS (1)
  1. RINVOQ [Suspect]
     Active Substance: UPADACITINIB
     Indication: Rheumatoid arthritis
     Route: 048
     Dates: start: 20200430

REACTIONS (3)
  - Coronary arterial stent insertion [Unknown]
  - Intestinal perforation [Unknown]
  - Coagulopathy [Unknown]

NARRATIVE: CASE EVENT DATE: 20200101
